FAERS Safety Report 15966123 (Version 1)
Quarter: 2019Q1

REPORT INFORMATION
  Report Type: Spontaneous
  Country: NL (occurrence: NL)
  Receive Date: 20190215
  Receipt Date: 20190215
  Transmission Date: 20190418
  Serious: Yes (Other)
  Sender: FDA-Public Use
  Company Number: NL-TEVA-2019-NL-1011400

PATIENT
  Age: 27 Year
  Sex: Female
  Weight: 76 kg

DRUGS (1)
  1. COTRIMOXAZOL TABLET, 160/800 MG (MILLIGRAM)COTRIMOXAZOL 960 TABLET 160 [Suspect]
     Active Substance: SULFAMETHOXAZOLE\TRIMETHOPRIM
     Indication: URINARY TRACT INFECTION
     Dosage: 2
     Dates: start: 20181221, end: 20181225

REACTIONS (5)
  - Confusional state [Recovering/Resolving]
  - Suicidal ideation [Recovering/Resolving]
  - Vomiting [Recovered/Resolved]
  - Insomnia [Recovering/Resolving]
  - Hallucination [Recovering/Resolving]

NARRATIVE: CASE EVENT DATE: 20181221
